FAERS Safety Report 12268347 (Version 1)
Quarter: 2016Q2

REPORT INFORMATION
  Report Type: Spontaneous
  Country: DE (occurrence: DE)
  Receive Date: 20160414
  Receipt Date: 20160414
  Transmission Date: 20160815
  Serious: Yes (Death, Other)
  Sender: FDA-Public Use
  Company Number: DE-PFIZER INC-2016195484

PATIENT
  Age: 63 Year
  Sex: Male

DRUGS (3)
  1. AXITINIB [Suspect]
     Active Substance: AXITINIB
     Indication: METASTATIC RENAL CELL CARCINOMA
     Dosage: 5 MG, 2X/DAY
     Dates: start: 201309
  2. AXITINIB [Suspect]
     Active Substance: AXITINIB
     Dosage: 7 MG, DAILY
  3. AXITINIB [Suspect]
     Active Substance: AXITINIB
     Dosage: 6 MG, DAILY

REACTIONS (7)
  - Decreased appetite [Unknown]
  - Disease progression [Unknown]
  - Diabetes mellitus [Unknown]
  - Hypertension [Unknown]
  - Myocardial infarction [Fatal]
  - Fatigue [Recovering/Resolving]
  - Metastatic renal cell carcinoma [Unknown]

NARRATIVE: CASE EVENT DATE: 201505
